FAERS Safety Report 19886639 (Version 1)
Quarter: 2021Q3

REPORT INFORMATION
  Report Type: Report from Study
  Country: None (occurrence: US)
  Receive Date: 20210928
  Receipt Date: 20210928
  Transmission Date: 20211014
  Serious: Yes (Other)
  Sender: FDA-Public Use
  Company Number: US-ABBVIE-21K-163-4002240-00

PATIENT
  Sex: Female

DRUGS (1)
  1. RINVOQ [Suspect]
     Active Substance: UPADACITINIB
     Indication: RHEUMATOID ARTHRITIS
     Route: 048
     Dates: start: 20210115, end: 2021

REACTIONS (9)
  - Pain [Unknown]
  - Pain in extremity [Recovering/Resolving]
  - Cardiac stress test abnormal [Unknown]
  - Pain in extremity [Recovering/Resolving]
  - Dermal cyst [Recovering/Resolving]
  - Intraneural cyst [Recovering/Resolving]
  - Catheterisation cardiac [Unknown]
  - Back pain [Unknown]
  - Osteoarthritis [Unknown]

NARRATIVE: CASE EVENT DATE: 2021
